FAERS Safety Report 24673558 (Version 2)
Quarter: 2024Q4

REPORT INFORMATION
  Report Type: Spontaneous
  Country: FI (occurrence: FI)
  Receive Date: 20241128
  Receipt Date: 20241217
  Transmission Date: 20250115
  Serious: Yes (Hospitalization, Other)
  Sender: ROCHE
  Company Number: None

PATIENT
  Age: 59 Year
  Sex: Male

DRUGS (12)
  1. BEVACIZUMAB [Suspect]
     Active Substance: BEVACIZUMAB
     Indication: Colorectal adenocarcinoma
     Dosage: UNK
     Route: 065
  2. BEVACIZUMAB [Suspect]
     Active Substance: BEVACIZUMAB
     Dosage: UNK
     Route: 065
     Dates: start: 202210
  3. CAPECITABINE [Suspect]
     Active Substance: CAPECITABINE
     Indication: Colorectal adenocarcinoma
     Route: 065
     Dates: start: 201805
  4. TIPIRACIL [Suspect]
     Active Substance: TIPIRACIL
     Indication: Colorectal adenocarcinoma
     Dosage: UNK
     Route: 065
     Dates: start: 202210
  5. TIPIRACIL [Suspect]
     Active Substance: TIPIRACIL
     Dosage: UNK
     Route: 065
  6. TRIFLURIDINE [Suspect]
     Active Substance: TRIFLURIDINE
     Indication: Colorectal adenocarcinoma
     Dosage: UNK
     Route: 065
     Dates: start: 202210
  7. TRIFLURIDINE [Suspect]
     Active Substance: TRIFLURIDINE
     Dosage: UNK
     Route: 065
  8. PANITUMUMAB [Suspect]
     Active Substance: PANITUMUMAB
     Indication: Colorectal adenocarcinoma
     Dosage: UNK
     Route: 065
  9. PANITUMUMAB [Suspect]
     Active Substance: PANITUMUMAB
     Dosage: UNK
     Route: 065
     Dates: start: 202312, end: 202312
  10. IRINOTECAN [Suspect]
     Active Substance: IRINOTECAN
     Indication: Colorectal adenocarcinoma
     Dosage: UNK
     Route: 065
     Dates: start: 201704
  11. OXALIPLATIN [Concomitant]
     Active Substance: OXALIPLATIN
     Indication: Product used for unknown indication
     Dosage: UNK
     Route: 065
  12. OXALIPLATIN [Concomitant]
     Active Substance: OXALIPLATIN
     Dosage: UNK
     Route: 065

REACTIONS (12)
  - Adenocarcinoma of colon [Unknown]
  - Dilated cardiomyopathy [Recovered/Resolved]
  - Atrial fibrillation [Recovered/Resolved]
  - Palpitations [Unknown]
  - Hypotension [Unknown]
  - Anaemia [Unknown]
  - COVID-19 [Unknown]
  - General physical health deterioration [Recovering/Resolving]
  - Hypoaesthesia [Unknown]
  - Off label use [Unknown]
  - Cardiac failure [Unknown]
  - Neoplasm [Unknown]
